FAERS Safety Report 4556061-2 (Version None)
Quarter: 2005Q1

REPORT INFORMATION
  Report Type: 
  Country: None (occurrence: None)
  Receive Date: 20050119
  Receipt Date: 20050113
  Transmission Date: 20050727
  Serious: Yes (Death, Hospitalization)
  Sender: FDA-Public Use
  Company Number: FR-GLAXOSMITHKLINE-B0364548A

PATIENT
  Age: 63 Year
  Sex: Female

DRUGS (4)
  1. AUGMENTIN '125' [Suspect]
     Dosage: 3G PER DAY
     Route: 065
     Dates: start: 20041202, end: 20041203
  2. DI-HYDAN [Suspect]
     Indication: STATUS EPILEPTICUS
     Dosage: 100MG THREE TIMES PER DAY
     Route: 048
     Dates: start: 20041101, end: 20041208
  3. LOVENOX [Suspect]
     Dosage: 4IU3 PER DAY
     Route: 058
     Dates: start: 20041101, end: 20041210
  4. NEURONTIN [Concomitant]
     Route: 065
     Dates: start: 20041208

REACTIONS (7)
  - DEATH [None]
  - HYPOVENTILATION [None]
  - MUCOSAL EROSION [None]
  - PYREXIA [None]
  - RASH MACULO-PAPULAR [None]
  - SKIN DISORDER [None]
  - TOXIC SKIN ERUPTION [None]
